FAERS Safety Report 8403245-9 (Version None)
Quarter: 2012Q2

REPORT INFORMATION
  Report Type: 
  Country: None (occurrence: None)
  Receive Date: 20120601
  Receipt Date: 20120524
  Transmission Date: 20120825
  Serious: Yes (Disabling)
  Sender: FDA-Public Use
  Company Number: US-MERCK-1205USA05004

PATIENT
  Sex: Female

DRUGS (2)
  1. FOSAMAX [Suspect]
     Indication: OSTEOPOROSIS PROPHYLAXIS
     Route: 048
     Dates: start: 20000101, end: 20031001
  2. FOSAMAX [Suspect]
     Indication: OSTEOPENIA
     Route: 048
     Dates: start: 20000101, end: 20031001

REACTIONS (5)
  - EMOTIONAL DISTRESS [None]
  - PAIN [None]
  - FEMUR FRACTURE [None]
  - MULTIPLE INJURIES [None]
  - LOW TURNOVER OSTEOPATHY [None]
